FAERS Safety Report 4998312-6 (Version None)
Quarter: 2006Q2

REPORT INFORMATION
  Report Type: 
  Country: None (occurrence: None)
  Receive Date: 20060508
  Receipt Date: 20060424
  Transmission Date: 20061013
  Serious: Yes (Other)
  Sender: FDA-Public Use
  Company Number: 2006US-02146

PATIENT
  Age: 24 Year
  Sex: Female

DRUGS (4)
  1. AMOXICILLIN + CLAVULANATE POTASSIUM [Suspect]
     Dosage: TOPICAL
     Route: 061
  2. SULBACTAM/AMPICILLIN [Concomitant]
  3. COBALT CHLORIDE [Concomitant]
  4. THIOMERSAL [Concomitant]

REACTIONS (3)
  - DERMATITIS CONTACT [None]
  - DRUG HYPERSENSITIVITY [None]
  - REACTION TO PRESERVATIVES [None]
